FAERS Safety Report 6661796 (Version 10)
Quarter: 2014Q3

REPORT INFORMATION
  Report Type: Report from Study
  Country: VE (occurrence: VE)
  Receive Date: 20080611
  Receipt Date: 20140703
  Transmission Date: 20150326
  Serious: Yes (Other)
  Sender: FDA-Public Use
  Company Number: PHHY2008VE10012

PATIENT
  Age: 57 Year
  Sex: Male

DRUGS (1)
  1. LEPONEX [Suspect]
     Active Substance: CLOZAPINE
     Indication: SCHIZOPHRENIA
     Dosage: 150 MG, (DAILY)
     Route: 048
     Dates: start: 19940815

REACTIONS (4)
  - White blood cell count decreased [Recovered/Resolved]
  - Eosinophil count increased [Recovered/Resolved]
  - Neutrophil count decreased [Recovered/Resolved]
  - Lymphocyte count increased [Recovered/Resolved]

NARRATIVE: CASE EVENT DATE: 20080526
